FAERS Safety Report 13788723 (Version 5)
Quarter: 2017Q3

REPORT INFORMATION
  Report Type: Spontaneous
  Country: IR (occurrence: IR)
  Receive Date: 20170725
  Receipt Date: 20170912
  Transmission Date: 20171127
  Serious: Yes (Hospitalization, Congenital Anomaly, Other)
  Sender: FDA-Public Use
  Company Number: IR-SUN PHARMACEUTICAL INDUSTRIES LTD-2017RR-145876

PATIENT
  Sex: Female

DRUGS (1)
  1. ISOTRETINOIN [Suspect]
     Active Substance: ISOTRETINOIN
     Indication: ACNE
     Dosage: UNK
     Route: 064

REACTIONS (6)
  - Anotia [Unknown]
  - Foetal exposure during pregnancy [Unknown]
  - Anophthalmos [Unknown]
  - Anal atresia [Unknown]
  - Neonatal respiratory distress syndrome [Unknown]
  - Cleft palate [Unknown]
